FAERS Safety Report 22590011 (Version 3)
Quarter: 2024Q2

REPORT INFORMATION
  Report Type: Spontaneous
  Country: US (occurrence: US)
  Receive Date: 20230612
  Receipt Date: 20240523
  Transmission Date: 20240716
  Serious: No
  Sender: FDA-Public Use
  Company Number: US-SA-SAC20230608001316

PATIENT
  Age: 16 Year
  Sex: Male

DRUGS (2)
  1. XENPOZYME [Suspect]
     Active Substance: OLIPUDASE ALFA-RPCP
     Indication: Niemann-Pick disease
     Dosage: 188 MG (IN 250 ML OF NORMAL SALINE (TOTAL VOLUME), QOW
     Route: 042
     Dates: start: 202304, end: 2023
  2. XENPOZYME [Suspect]
     Active Substance: OLIPUDASE ALFA-RPCP
     Dosage: 18.9MG AT WEEK 4 OR PER DOSE ESCALATION PROTOCOL
     Route: 042
     Dates: start: 202305

REACTIONS (2)
  - Weight increased [Unknown]
  - Headache [Recovered/Resolved]

NARRATIVE: CASE EVENT DATE: 20230401
